FAERS Safety Report 6872298-1 (Version None)
Quarter: 2010Q3

REPORT INFORMATION
  Report Type: 
  Country: None (occurrence: None)
  Receive Date: 20100723
  Receipt Date: 20100713
  Transmission Date: 20110219
  Serious: Yes (Other)
  Sender: FDA-Public Use
  Company Number: US-ABBOTT-10P-163-0656843-00

PATIENT
  Sex: Female

DRUGS (6)
  1. DEPAKOTE [Suspect]
     Indication: PRODUCT USED FOR UNKNOWN INDICATION
  2. NEURONTIN [Suspect]
     Indication: PRODUCT USED FOR UNKNOWN INDICATION
  3. EFFEXOR [Suspect]
     Indication: DEPRESSION
     Route: 048
  4. EFFEXOR [Suspect]
  5. EFFEXOR XR [Suspect]
     Indication: DEPRESSION
     Dates: end: 20100501
  6. ABILIFY [Suspect]
     Indication: PRODUCT USED FOR UNKNOWN INDICATION
     Dates: end: 20080401

REACTIONS (3)
  - TRICHOTILLOMANIA [None]
  - WEIGHT DECREASED [None]
  - WEIGHT INCREASED [None]
